FAERS Safety Report 12561506 (Version 2)
Quarter: 2016Q4

REPORT INFORMATION
  Report Type: Spontaneous
  Country: US (occurrence: US)
  Receive Date: 20160715
  Receipt Date: 20161007
  Transmission Date: 20170207
  Serious: No
  Sender: FDA-Public Use
  Company Number: US-GLAXOSMITHKLINE-US2016GSK095967

PATIENT
  Sex: Female

DRUGS (1)
  1. BENLYSTA [Suspect]
     Active Substance: BELIMUMAB
     Dosage: UNK
     Dates: start: 2015

REACTIONS (6)
  - Raynaud^s phenomenon [Not Recovered/Not Resolved]
  - Swelling [Unknown]
  - Drug effect decreased [Unknown]
  - Poor venous access [Unknown]
  - Fatigue [Unknown]
  - Pain [Unknown]
